FAERS Safety Report 16510582 (Version 4)
Quarter: 2019Q3

REPORT INFORMATION
  Report Type: Report from Study
  Country: NL (occurrence: NL)
  Receive Date: 20190702
  Receipt Date: 20190918
  Transmission Date: 20191004
  Serious: Yes (Hospitalization)
  Sender: FDA-Public Use
  Company Number: NL-ROCHE-2345763

PATIENT
  Age: 69 Year
  Sex: Female
  Weight: 68.6 kg

DRUGS (6)
  1. ATEZOLIZUMAB. [Suspect]
     Active Substance: ATEZOLIZUMAB
     Indication: OVARIAN CANCER
     Dosage: ON 06/JUN/2019, SHE RECEIVED THE MOST RECENT DOSE OF ATEZOLIZUMAB PRIOR TO SERIOUS ADVERSE EVENT ONS
     Route: 042
     Dates: start: 20190606
  2. ZOPICLON [Concomitant]
     Active Substance: ZOPICLONE
  3. BISACODYL. [Concomitant]
     Active Substance: BISACODYL
  4. MOVICOLON [Concomitant]
     Active Substance: POLYETHYLENE GLYCOL 3350\POTASSIUM CHLORIDE\SODIUM BICARBONATE\SODIUM CHLORIDE
  5. CABOZANTINIB [Suspect]
     Active Substance: CABOZANTINIB
     Route: 048
     Dates: start: 20190725
  6. CABOZANTINIB [Suspect]
     Active Substance: CABOZANTINIB
     Indication: OVARIAN CANCER
     Dosage: ON 19/JUN/2019, SHE RECEIVED THE MOST RECENT DOSE OF CABOZANTINIB.
     Route: 048
     Dates: start: 20190606

REACTIONS (1)
  - Pain [Recovered/Resolved]

NARRATIVE: CASE EVENT DATE: 20190615
